FAERS Safety Report 5818208-7 (Version None)
Quarter: 2008Q3

REPORT INFORMATION
  Report Type: 
  Country: None (occurrence: None)
  Receive Date: 20080722
  Receipt Date: 20080514
  Transmission Date: 20090109
  Serious: No
  Sender: FDA-Public Use
  Company Number: US-BAYER-200710375BCC

PATIENT
  Age: 85 Year
  Sex: Female
  Weight: 89 kg

DRUGS (3)
  1. ALEVE [Suspect]
     Indication: OSTEOARTHRITIS
     Dosage: UNIT DOSE: 220 MG
     Route: 048
     Dates: start: 20070101
  2. ALEVE [Suspect]
     Route: 048
     Dates: start: 20060101
  3. ALEVE (CAPLET) [Suspect]
     Indication: ARTHRALGIA
     Route: 048

REACTIONS (1)
  - OSTEOARTHRITIS [None]
